FAERS Safety Report 8238495-8 (Version None)
Quarter: 2012Q1

REPORT INFORMATION
  Report Type: 
  Country: None (occurrence: None)
  Receive Date: 20120327
  Receipt Date: 20120320
  Transmission Date: 20120608
  Serious: Yes (Other)
  Sender: FDA-Public Use
  Company Number: AU-PFIZER INC-2012072739

PATIENT
  Sex: Female

DRUGS (2)
  1. PRISTIQ [Suspect]
     Dosage: UNK
  2. ASPALGIN [Concomitant]
     Indication: PAIN
     Dosage: UNK

REACTIONS (3)
  - EYE HAEMORRHAGE [None]
  - CONTUSION [None]
  - GINGIVAL BLEEDING [None]
